FAERS Safety Report 15400556 (Version 1)
Quarter: 2018Q4

REPORT INFORMATION
  Report Type: Spontaneous
  Country: US (occurrence: US)
  Receive Date: 20180919
  Receipt Date: 20180919
  Transmission Date: 20190204
  Serious: No
  Sender: FDA-Public Use
  Company Number: US-AUROBINDO-AUR-APL-2018-001751

PATIENT
  Sex: Female
  Weight: 54.4 kg

DRUGS (1)
  1. MONTELUKAST CHEWABLE TABLETS 5MG [Suspect]
     Active Substance: MONTELUKAST SODIUM
     Indication: HYPERSENSITIVITY
     Dosage: 5 MILLIGRAM, 1X/DAY
     Route: 048
     Dates: start: 201712, end: 20180104

REACTIONS (4)
  - Diarrhoea [Recovered/Resolved]
  - Gluten sensitivity [Recovered/Resolved]
  - Nausea [Recovered/Resolved]
  - Abdominal pain upper [Recovered/Resolved]
